FAERS Safety Report 7689732-X (Version None)
Quarter: 2011Q3

REPORT INFORMATION
  Report Type: 
  Country: None (occurrence: None)
  Receive Date: 20110817
  Receipt Date: 20110810
  Transmission Date: 20111222
  Serious: Yes (Hospitalization)
  Sender: FDA-Public Use
  Company Number: FR-BAXTER-2011BH026530

PATIENT
  Age: 65 Year
  Sex: Female
  Weight: 94 kg

DRUGS (6)
  1. TENORMIN [Concomitant]
     Indication: HYPERTENSION
     Route: 048
  2. ATORVASTATIN CALCIUM [Concomitant]
     Indication: DYSLIPIDAEMIA
     Route: 048
  3. INDAPAMIDE [Concomitant]
     Indication: HYPERTENSION
     Route: 048
  4. FLUOROURACIL [Suspect]
     Indication: BREAST CANCER IN SITU
     Route: 042
     Dates: start: 20110530, end: 20110630
  5. EPIRUBICIN HYDROCHLORIDE [Suspect]
     Indication: BREAST CANCER IN SITU
     Route: 042
     Dates: start: 20110530, end: 20110630
  6. CYCLOPHOSPHAMIDE [Suspect]
     Indication: BREAST CANCER IN SITU
     Route: 042
     Dates: start: 20110530, end: 20110630

REACTIONS (1)
  - PRINZMETAL ANGINA [None]
